FAERS Safety Report 9746470 (Version 3)
Quarter: 2014Q1

REPORT INFORMATION
  Report Type: Spontaneous
  Country: JP (occurrence: JP)
  Receive Date: 20131211
  Receipt Date: 20140103
  Transmission Date: 20141002
  Serious: Yes (Hospitalization, Other)
  Sender: FDA-Public Use
  Company Number: JP-ASTRAZENECA-2013SE89229

PATIENT
  Age: 73 Year
  Sex: Female

DRUGS (16)
  1. SYMBICORT TURBUHALER [Suspect]
     Indication: ASTHMA
     Dosage: 400 UG, TWO TIMES A DAY
     Route: 055
     Dates: start: 20121106, end: 20130702
  2. BONALON [Concomitant]
     Indication: OSTEOPOROSIS PROPHYLAXIS
     Route: 048
     Dates: start: 20130320
  3. PREDNISOLONE [Concomitant]
     Indication: ASTHMA
     Route: 048
     Dates: start: 20130320
  4. PREDNISOLONE [Concomitant]
     Indication: ASTHMA
  5. PREDNISOLONE [Concomitant]
     Indication: ASTHMA
     Dates: start: 20131126
  6. PLAVIX [Concomitant]
     Indication: ANGINA PECTORIS
     Route: 048
     Dates: start: 201207
  7. CRESTOR [Concomitant]
     Indication: HYPERLIPIDAEMIA
     Route: 048
     Dates: start: 201207
  8. AMLODIPINE [Concomitant]
     Indication: ASTHMA
     Route: 048
     Dates: start: 201207
  9. MAGNESIUM OXIDE [Concomitant]
     Indication: CONSTIPATION
     Route: 048
     Dates: start: 2008
  10. NOVORAPID [Concomitant]
     Indication: DIABETES MELLITUS
     Route: 058
     Dates: start: 2008
  11. BAYASPIRIN [Concomitant]
     Indication: ANGINA PECTORIS
     Route: 065
     Dates: start: 200803
  12. THEODUR [Concomitant]
     Indication: ASTHMA
     Route: 065
     Dates: start: 20130212, end: 20130320
  13. BLOPRESS [Concomitant]
     Indication: ANGINA PECTORIS
     Route: 048
     Dates: start: 201207
  14. GASTER D [Concomitant]
     Indication: GASTRITIS
     Route: 048
     Dates: start: 201207
  15. SINGULAIR [Concomitant]
     Indication: ASTHMA
     Route: 048
     Dates: start: 20120131, end: 20130320
  16. LUPRAC [Concomitant]
     Indication: ANGINA PECTORIS
     Route: 048
     Dates: start: 20120602

REACTIONS (1)
  - Asthma [Recovering/Resolving]
